FAERS Safety Report 6338284-5 (Version None)
Quarter: 2009Q3

REPORT INFORMATION
  Report Type: 
  Country: None (occurrence: None)
  Receive Date: 20090902
  Receipt Date: 20090824
  Transmission Date: 20100115
  Serious: Yes (Hospitalization)
  Sender: FDA-Public Use
  Company Number: DE-ABBOTT-09P-062-0591054-00

PATIENT
  Sex: Male
  Weight: 79 kg

DRUGS (1)
  1. KALETRA [Suspect]
     Indication: HIV INFECTION

REACTIONS (3)
  - APPENDICITIS [None]
  - APPENDICITIS PERFORATED [None]
  - HAEMATURIA [None]
